FAERS Safety Report 17130990 (Version 1)
Quarter: 2019Q4

REPORT INFORMATION
  Report Type: Spontaneous
  Country: CN (occurrence: CN)
  Receive Date: 20191209
  Receipt Date: 20191209
  Transmission Date: 20200122
  Serious: Yes (Other)
  Sender: FDA-Public Use
  Company Number: NVSC2019CN056666

PATIENT
  Age: 69 Year
  Sex: Male

DRUGS (5)
  1. MADOPAR [Interacting]
     Active Substance: BENSERAZIDE HYDROCHLORIDE\LEVODOPA
     Dosage: 250 MG, Q8H
     Route: 048
  2. MADOPAR [Interacting]
     Active Substance: BENSERAZIDE HYDROCHLORIDE\LEVODOPA
     Indication: PARKINSON^S DISEASE
     Dosage: 1250 MG, QD
     Route: 048
  3. MADOPAR [Interacting]
     Active Substance: BENSERAZIDE HYDROCHLORIDE\LEVODOPA
     Dosage: 62.5 MG, Q4H (6 DOSES/DAY)
     Route: 048
  4. ENTACAPONE. [Suspect]
     Active Substance: ENTACAPONE
     Indication: PARKINSON^S DISEASE
     Dosage: 0.1 G, Q8H
     Route: 048
  5. ENTACAPONE. [Interacting]
     Active Substance: ENTACAPONE
     Dosage: 0.3 G, Q8H
     Route: 048

REACTIONS (3)
  - Wrong technique in product usage process [Unknown]
  - Dyskinesia [Recovered/Resolved]
  - Drug interaction [Unknown]
